FAERS Safety Report 9844112 (Version 1)
Quarter: 2014Q1

REPORT INFORMATION
  Report Type: Spontaneous
  Country: GB (occurrence: GB)
  Receive Date: 20140127
  Receipt Date: 20140127
  Transmission Date: 20141002
  Serious: Yes (Other)
  Sender: FDA-Public Use
  Company Number: GB-ROCHE-1336198

PATIENT
  Age: 69 Year
  Sex: Female
  Weight: 50 kg

DRUGS (3)
  1. RITUXIMAB [Suspect]
     Indication: RHEUMATOID ARTHRITIS
     Route: 042
     Dates: start: 20131124, end: 20131207
  2. METHOTREXATE [Concomitant]
  3. SALAZOPYRIN [Concomitant]

REACTIONS (6)
  - Dermatitis allergic [Not Recovered/Not Resolved]
  - Eczema [Recovering/Resolving]
  - Erythema [Not Recovered/Not Resolved]
  - Pruritus [Recovering/Resolving]
  - Pain [Recovering/Resolving]
  - Periorbital oedema [Not Recovered/Not Resolved]
